FAERS Safety Report 10948734 (Version 1)
Quarter: 2015Q1

REPORT INFORMATION
  Report Type: Spontaneous
  Country: US (occurrence: None)
  Receive Date: 20150323
  Receipt Date: 20150323
  Transmission Date: 20150721
  Serious: No
  Sender: FDA-Public Use
  Company Number: None

PATIENT
  Age: 49 Year
  Sex: Female
  Weight: 107.96 kg

DRUGS (11)
  1. VITAMIN D3 [Concomitant]
     Active Substance: CHOLECALCIFEROL
  2. SULFA/TRIMETH 800 MG TABLETS [Suspect]
     Active Substance: SULFAMETHOXAZOLE\TRIMETHOPRIM
     Indication: FURUNCLE
     Route: 048
     Dates: start: 20150115
  3. SULFA/TRIMETH 800 MG TABLETS [Suspect]
     Active Substance: SULFAMETHOXAZOLE\TRIMETHOPRIM
     Indication: BREAST DISORDER
     Route: 048
     Dates: start: 20150115
  4. ASPIRIN. [Concomitant]
     Active Substance: ASPIRIN
  5. NORTRIPTYLIN [Concomitant]
     Active Substance: NORTRIPTYLINE
  6. TOPIRAMATE. [Concomitant]
     Active Substance: TOPIRAMATE
  7. AZITHROMYCIN [Concomitant]
     Active Substance: AZITHROMYCIN ANHYDROUS
  8. HYDROCODONE [Concomitant]
     Active Substance: HYDROCODONE
  9. LEVOFLOXACIN. [Concomitant]
     Active Substance: LEVOFLOXACIN
  10. PROMETHAZINE [Concomitant]
     Active Substance: PROMETHAZINE\PROMETHAZINE HYDROCHLORIDE
  11. PROVENTIL [Concomitant]
     Active Substance: ALBUTEROL

REACTIONS (3)
  - Skin discolouration [None]
  - Rash erythematous [None]
  - Erythema [None]
